FAERS Safety Report 17032146 (Version 2)
Quarter: 2019Q4

REPORT INFORMATION
  Report Type: Spontaneous
  Country: GR (occurrence: GR)
  Receive Date: 20191114
  Receipt Date: 20191118
  Transmission Date: 20200122
  Serious: Yes (Other)
  Sender: FDA-Public Use
  Company Number: GR-MYLANLABS-2019M1109107

PATIENT
  Age: 66 Year
  Sex: Male

DRUGS (4)
  1. EZETIMIBE. [Concomitant]
     Active Substance: EZETIMIBE
     Indication: HYPERLIPIDAEMIA
     Dosage: 10 MG, UNK
     Route: 065
  2. METHYLPREDNISOLONE. [Suspect]
     Active Substance: METHYLPREDNISOLONE
     Indication: MYOSITIS
     Dosage: 1 GRAM, MONTHLY
     Route: 042
  3. ATORVASTATIN [Suspect]
     Active Substance: ATORVASTATIN
     Indication: HYPERLIPIDAEMIA
     Dosage: 40 MG, UNK
     Route: 065
  4. SIMVASTATIN. [Suspect]
     Active Substance: SIMVASTATIN
     Indication: HYPERLIPIDAEMIA
     Dosage: SIMVASTATIN 10 MG AND EZETIMIBE 10MG
     Route: 065

REACTIONS (6)
  - Atrophy [Recovering/Resolving]
  - Immune-mediated myositis [Recovering/Resolving]
  - Myopathy [Recovering/Resolving]
  - Myositis [Recovering/Resolving]
  - Necrotising myositis [Not Recovered/Not Resolved]
  - Muscular weakness [Recovering/Resolving]
